FAERS Safety Report 6593017-2 (Version None)
Quarter: 2010Q1

REPORT INFORMATION
  Report Type: 
  Country: None (occurrence: None)
  Receive Date: 20100218
  Receipt Date: 20100218
  Transmission Date: 20100710
  Serious: Yes (Other)
  Sender: FDA-Public Use
  Company Number: None

PATIENT
  Age: 57 Year
  Sex: Female

DRUGS (1)
  1. EQUATE ACETAMINOPHEN 500MG WAL-MART STORES [Suspect]
     Indication: SLEEP DISORDER
     Dosage: 500-1000MG EVERY 6 HOURS PO
     Route: 048
     Dates: start: 20091101, end: 20100214

REACTIONS (2)
  - NIGHTMARE [None]
  - PRODUCT SUBSTITUTION ISSUE [None]
